FAERS Safety Report 9713944 (Version 1)
Quarter: 2013Q4

REPORT INFORMATION
  Report Type: Spontaneous
  Country: US (occurrence: US)
  Receive Date: 20131126
  Receipt Date: 20131126
  Transmission Date: 20140711
  Serious: No
  Sender: FDA-Public Use
  Company Number: US-GILEAD-2008-0018217

PATIENT
  Sex: Male
  Weight: 87.09 kg

DRUGS (11)
  1. LETAIRIS [Suspect]
     Indication: PULMONARY ARTERIAL HYPERTENSION
     Route: 048
     Dates: start: 20080325
  2. LASIX [Concomitant]
     Dosage: AS DIRECTED
     Route: 048
  3. CLONAZEPAM [Concomitant]
     Dosage: AS DIRECTED
     Route: 048
  4. CRESTOR [Concomitant]
     Dosage: AS DIRECTED
     Route: 048
  5. ADVAIR [Concomitant]
     Dosage: AS DIRECTED
  6. ASPIRIN [Concomitant]
     Dosage: AS DIRECTED
     Route: 048
  7. SODIUM CHLORIDE [Concomitant]
     Dosage: AS DIRECTED
  8. REMODULIN [Concomitant]
     Dosage: AS DIRECTED
  9. OXYGEN [Concomitant]
     Dosage: AS DIRECTED
  10. ACETAMINOPHEN [Concomitant]
     Dosage: AS DIRECTED
     Route: 048
  11. PRILOSEC [Concomitant]
     Dosage: AS DIRECTED
     Route: 048

REACTIONS (1)
  - Fluid retention [None]
